FAERS Safety Report 8361175-5 (Version None)
Quarter: 2012Q2

REPORT INFORMATION
  Report Type: 
  Country: None (occurrence: None)
  Receive Date: 20120514
  Receipt Date: 20120503
  Transmission Date: 20120825
  Serious: Yes (Hospitalization)
  Sender: FDA-Public Use
  Company Number: 2012SP023729

PATIENT
  Age: 19 Year
  Sex: Female

DRUGS (1)
  1. IMPLANON [Suspect]
     Indication: CONTRACEPTION
     Dosage: SBDE
     Route: 059
     Dates: start: 20100907, end: 20120221

REACTIONS (3)
  - ABORTION SPONTANEOUS [None]
  - PREGNANCY WITH IMPLANT CONTRACEPTIVE [None]
  - MATERNAL EXPOSURE DURING PREGNANCY [None]
